FAERS Safety Report 8696494 (Version 2)
Quarter: 2012Q4

REPORT INFORMATION
  Report Type: 
  Country: US (occurrence: US)
  Receive Date: 20120801
  Receipt Date: 20120830
  Transmission Date: 20130627
  Serious: No
  Sender: FDA-Public Use
  Company Number: US-009507513-2012SP034053

PATIENT

DRUGS (2)
  1. IMPLANON [Suspect]
     Indication: MENSTRUATION IRREGULAR
     Dosage: UNK
     Route: 059
     Dates: start: 20111213, end: 20120711
  2. IMPLANON [Suspect]
     Indication: DYSMENORRHOEA

REACTIONS (4)
  - Amenorrhoea [Not Recovered/Not Resolved]
  - Off label use [Unknown]
  - Device dislocation [Unknown]
  - Medical device complication [Unknown]
